FAERS Safety Report 14711280 (Version 2)
Quarter: 2018Q2

REPORT INFORMATION
  Report Type: Report from Study
  Country: MX (occurrence: MX)
  Receive Date: 20180403
  Receipt Date: 20180416
  Transmission Date: 20180711
  Serious: No
  Sender: FDA-Public Use
  Company Number: PHHY2018MX053201

PATIENT
  Sex: Female
  Weight: 96 kg

DRUGS (4)
  1. TRILEPTAL [Suspect]
     Active Substance: OXCARBAZEPINE
     Dosage: 2 DF, QD
     Route: 048
     Dates: start: 20180323
  2. TRILEPTAL [Suspect]
     Active Substance: OXCARBAZEPINE
     Indication: SEIZURE
     Dosage: 3 DF, QD (APPROXIMATELY 7 YEARS AGO)
     Route: 048
  3. TRILEPTAL [Suspect]
     Active Substance: OXCARBAZEPINE
     Dosage: 2 DF, QD
     Route: 048
     Dates: start: 2013, end: 20180309
  4. TELMISARTAN. [Concomitant]
     Active Substance: TELMISARTAN
     Indication: HYPERTENSION
     Dosage: 40 MG, QD (IN THE MORNING) (HALF YEAR AGO)
     Route: 048

REACTIONS (1)
  - Limb discomfort [Not Recovered/Not Resolved]
